FAERS Safety Report 24779649 (Version 1)
Quarter: 2024Q4

REPORT INFORMATION
  Report Type: Spontaneous
  Country: US (occurrence: US)
  Receive Date: 20241226
  Receipt Date: 20241226
  Transmission Date: 20250115
  Serious: No
  Sender: BAUSCH AND LOMB
  Company Number: US-BAUSCHBL-2024BNL039215

PATIENT
  Age: 84 Year
  Sex: Female

DRUGS (2)
  1. LATANOPROST [Suspect]
     Active Substance: LATANOPROST
     Indication: Glaucoma
     Route: 047
  2. TIMOLOL [Concomitant]
     Active Substance: TIMOLOL\TIMOLOL MALEATE
     Indication: Product used for unknown indication
     Route: 047

REACTIONS (2)
  - Erythema of eyelid [Unknown]
  - Product closure removal difficult [Unknown]
